FAERS Safety Report 23624320 (Version 1)
Quarter: 2024Q1

REPORT INFORMATION
  Report Type: Spontaneous
  Country: US (occurrence: US)
  Receive Date: 20240312
  Receipt Date: 20240312
  Transmission Date: 20240409
  Serious: No
  Sender: FDA-Public Use
  Company Number: US-ABBVIE-5671572

PATIENT
  Age: 73 Year
  Sex: Male

DRUGS (2)
  1. VENCLEXTA [Suspect]
     Active Substance: VENETOCLAX
     Indication: Myelodysplastic syndrome
     Dosage: 1 TABLET?FORM STRENGTH: 100 MG?END DATE 2024
     Route: 048
     Dates: start: 20240228
  2. AZACITIDINE [Concomitant]
     Active Substance: AZACITIDINE
     Indication: Product used for unknown indication
     Route: 065
     Dates: start: 20240221

REACTIONS (4)
  - Pruritus [Unknown]
  - Hypotension [Unknown]
  - Heart rate increased [Unknown]
  - Exophthalmos [Unknown]

NARRATIVE: CASE EVENT DATE: 20240229
